FAERS Safety Report 7767385-X (Version None)
Quarter: 2011Q3

REPORT INFORMATION
  Report Type: 
  Country: None (occurrence: None)
  Receive Date: 20110922
  Receipt Date: 20100415
  Transmission Date: 20111222
  Serious: No
  Sender: FDA-Public Use
  Company Number: US-ASTRAZENECA-2006UW27361

PATIENT
  Age: 10540 Day
  Sex: Male
  Weight: 117.9 kg

DRUGS (22)
  1. GEODON [Concomitant]
     Indication: SUSPICIOUSNESS
     Dosage: 20 MG 2006 AND 2008, 40 MG AND 60 MG 2003 AND 2007
  2. GEODON [Concomitant]
     Indication: PARANOIA
     Dosage: 20 MG 2006 AND 2008, 40 MG AND 60 MG 2003 AND 2007
  3. GEODON [Concomitant]
     Route: 048
     Dates: start: 20061229
  4. CLONAZEPAM [Concomitant]
     Dates: start: 20080101
  5. SEROQUEL [Suspect]
     Route: 048
     Dates: start: 20061229
  6. RISPERDAL [Suspect]
     Indication: SCHIZOPHRENIA
     Dosage: 1 MG, 2 MG, 4 MG AND INJECTIONS 25 MG AND 37.5 MG.
     Route: 065
     Dates: start: 20031128, end: 20060703
  7. HALDOL [Concomitant]
     Dates: start: 20030101, end: 20060101
  8. SEROQUEL [Suspect]
     Indication: PARANOIA
     Route: 048
     Dates: start: 20061229, end: 20080419
  9. COGENTIN [Concomitant]
  10. SEROQUEL [Suspect]
     Indication: SLEEP DISORDER
     Route: 048
     Dates: start: 20061229, end: 20080419
  11. ABILIFY [Concomitant]
     Dosage: 10 MG, 20 MG AND 30 MG
     Dates: start: 20030101
  12. GEODON [Concomitant]
     Route: 048
     Dates: start: 20061229
  13. LORAZEPAM [Concomitant]
     Dosage: 1 MG-2 MG,TAKE ONE TABLET BY MOUTH EVERY 6 HOURS AS NEEDED
     Route: 048
     Dates: start: 20061213
  14. LORAZEPAM [Concomitant]
     Dosage: 1 MG-2 MG,TAKE ONE TABLET BY MOUTH EVERY 6 HOURS AS NEEDED
     Route: 048
     Dates: start: 20061213
  15. SEROQUEL [Suspect]
     Route: 048
     Dates: start: 20061229
  16. RISPERDAL [Suspect]
     Indication: DEPRESSION
     Dosage: 1 MG, 2 MG, 4 MG AND INJECTIONS 25 MG AND 37.5 MG.
     Route: 065
     Dates: start: 20031128, end: 20060703
  17. ZYPREXA [Concomitant]
     Indication: SCHIZOPHRENIA
     Dosage: 20 MG, 40 MG, 60 MG AND 80 MG.
     Dates: start: 20031014, end: 20080820
  18. ASPIRIN [Concomitant]
     Route: 048
     Dates: start: 20061229
  19. ZYPREXA [Concomitant]
     Indication: DEPRESSION
     Dosage: 20 MG, 40 MG, 60 MG AND 80 MG.
     Dates: start: 20031014, end: 20080820
  20. LORAZEPAM [Concomitant]
     Indication: ANXIETY
     Dosage: 1 MG AND 2 MG 2006, 2007 AND 2008
  21. LORAZEPAM [Concomitant]
     Indication: AGITATION
     Dosage: 1 MG AND 2 MG 2006, 2007 AND 2008
  22. ZOLOFT [Concomitant]
     Dosage: 50 MG AND 100 MG

REACTIONS (3)
  - TYPE 2 DIABETES MELLITUS [None]
  - DRUG INEFFECTIVE [None]
  - TYPE 1 DIABETES MELLITUS [None]
